FAERS Safety Report 7219480-1 (Version None)
Quarter: 2011Q1

REPORT INFORMATION
  Report Type: 
  Country: None (occurrence: None)
  Receive Date: 20110111
  Receipt Date: 20110107
  Transmission Date: 20110831
  Serious: Yes (Death)
  Sender: FDA-Public Use
  Company Number: PHFR2011GB00547

PATIENT
  Sex: Male

DRUGS (2)
  1. CLOZARIL [Suspect]
     Indication: ALCOHOLIC PSYCHOSIS
     Dosage: UNK MG, UNK
     Route: 048
     Dates: start: 20091106
  2. IRON [Concomitant]
     Indication: HAEMOGLOBIN DECREASED
     Dosage: UNK DF, UNK

REACTIONS (1)
  - MYOCARDIAL INFARCTION [None]
